FAERS Safety Report 8908527 (Version 4)
Quarter: 2013Q3

REPORT INFORMATION
  Report Type: Spontaneous
  Country: JP (occurrence: JP)
  Receive Date: 20121114
  Receipt Date: 20130812
  Transmission Date: 20140515
  Serious: Yes (Other)
  Sender: FDA-Public Use
  Company Number: JP-ELI_LILLY_AND_COMPANY-JP201209001402

PATIENT
  Age: 79 Year
  Sex: Male
  Weight: 59 kg

DRUGS (6)
  1. CYMBALTA [Suspect]
     Indication: POST HERPETIC NEURALGIA
     Dosage: 20 MG, QD
     Route: 048
     Dates: start: 20120515, end: 20120521
  2. CYMBALTA [Suspect]
     Dosage: 20 MG, BID
     Route: 048
     Dates: start: 20120522, end: 20120823
  3. CYMBALTA [Suspect]
     Dosage: UNK
     Route: 048
     Dates: start: 201208, end: 20120823
  4. TRYPTANOL [Suspect]
     Indication: POST HERPETIC NEURALGIA
     Dosage: 10 MG, QD
     Route: 048
  5. TRYPTANOL [Suspect]
     Dosage: 25 MG, QD
     Route: 048
     Dates: start: 20120410, end: 20120521
  6. TRYPTANOL [Suspect]
     Dosage: 10 MG, QD
     Route: 048
     Dates: start: 20120522, end: 20120823

REACTIONS (4)
  - Postrenal failure [Not Recovered/Not Resolved]
  - Urinary retention [Not Recovered/Not Resolved]
  - Hypertension [Recovering/Resolving]
  - Off label use [Recovered/Resolved]
